FAERS Safety Report 13591022 (Version 3)
Quarter: 2017Q3

REPORT INFORMATION
  Report Type: Report from Study
  Country: US (occurrence: US)
  Receive Date: 20170529
  Receipt Date: 20170807
  Transmission Date: 20171127
  Serious: No
  Sender: FDA-Public Use
  Company Number: US-AMGEN-USASL2017079321

PATIENT
  Age: 56 Year
  Sex: Female

DRUGS (1)
  1. NPLATE [Suspect]
     Active Substance: ROMIPLOSTIM
     Indication: IMMUNE THROMBOCYTOPENIC PURPURA
     Dosage: 2.5 MUG/KG, QWK
     Route: 065

REACTIONS (5)
  - Swelling [Recovering/Resolving]
  - Arthritis [Recovering/Resolving]
  - Dizziness [Unknown]
  - Pyrexia [Unknown]
  - Eating disorder [Unknown]

NARRATIVE: CASE EVENT DATE: 201705
